FAERS Safety Report 21414082 (Version 17)
Quarter: 2023Q1

REPORT INFORMATION
  Report Type: Report from Study
  Country: CN (occurrence: None)
  Receive Date: 20221006
  Receipt Date: 20230302
  Transmission Date: 20230418
  Serious: Yes (Hospitalization)
  Sender: FDA-Public Use
  Company Number: CN-ROCHE-3191631

PATIENT
  Age: 48 Year
  Sex: Male
  Weight: 46 kg

DRUGS (43)
  1. ATEZOLIZUMAB [Suspect]
     Active Substance: ATEZOLIZUMAB
     Indication: Intestinal adenocarcinoma
     Dosage: MOST RECENT DOSE OF STUDY DRUG PRIOR TO AE 02/AUG/2022
     Route: 041
     Dates: start: 20220802
  2. TIRAGOLUMAB [Suspect]
     Active Substance: TIRAGOLUMAB
     Indication: Intestinal adenocarcinoma
     Dosage: START DATE OF MOST RECENT DOSE OF STUDY DRUG PRIOR TO AE WAS 600 MG ON 02/AUG/2022
     Route: 042
     Dates: start: 20220802
  3. CAPECITABINE [Suspect]
     Active Substance: CAPECITABINE
     Indication: Intestinal adenocarcinoma
     Dosage: START AND END DATE OF MOST RECENT DOSE (1500 MG) OF STUDY DRUG PRIOR TO AE WAS 02-AUG-2022. DAYS 1-1
     Route: 048
     Dates: start: 20220802
  4. OXALIPLATIN [Suspect]
     Active Substance: OXALIPLATIN
     Indication: Intestinal adenocarcinoma
     Dosage: START DATE OF MOST RECENT DOSE (187 MG) OF STUDY DRUG PRIOR TO AE WAS 02/AUG/2022
     Route: 042
     Dates: start: 20220802
  5. COMPOUND AMINO ACID INJECTION (6AA) [Concomitant]
     Route: 042
     Dates: start: 20220908, end: 20220908
  6. COMPOUND AMINO ACID INJECTION (6AA) [Concomitant]
     Route: 042
     Dates: start: 20220917, end: 20220917
  7. COMPOUND AMINO ACID INJECTION (6AA) [Concomitant]
     Route: 042
     Dates: start: 20220918, end: 20220918
  8. COMPOUND AMINO ACID INJECTION (6AA) [Concomitant]
     Route: 042
     Dates: start: 20220920, end: 20220920
  9. COMPOUND AMINO ACID INJECTION (6AA) [Concomitant]
     Route: 042
     Dates: start: 20220922, end: 20220922
  10. SODIUM CHLORIDE [Concomitant]
     Active Substance: SODIUM CHLORIDE
     Route: 042
     Dates: start: 20220908, end: 20220908
  11. SODIUM CHLORIDE [Concomitant]
     Active Substance: SODIUM CHLORIDE
     Route: 042
     Dates: start: 20220909, end: 20220927
  12. SODIUM CHLORIDE [Concomitant]
     Active Substance: SODIUM CHLORIDE
     Route: 042
     Dates: start: 20220726, end: 20220726
  13. DEXTROSE [Concomitant]
     Active Substance: DEXTROSE
     Route: 042
     Dates: start: 20220908, end: 20220908
  14. DEXTROSE [Concomitant]
     Active Substance: DEXTROSE
     Route: 042
     Dates: start: 20220908, end: 20220908
  15. DEXTROSE [Concomitant]
     Active Substance: DEXTROSE
     Route: 042
     Dates: start: 20220919, end: 20220921
  16. DEXTROSE [Concomitant]
     Active Substance: DEXTROSE
     Route: 042
     Dates: start: 20220909, end: 20220927
  17. DEXTROSE [Concomitant]
     Active Substance: DEXTROSE
     Route: 042
     Dates: start: 20220726, end: 20220726
  18. DEXTROSE [Concomitant]
     Active Substance: DEXTROSE
     Route: 042
     Dates: start: 20220726, end: 20220726
  19. DEXTROSE [Concomitant]
     Active Substance: DEXTROSE
     Route: 042
     Dates: start: 20220727, end: 20220727
  20. DEXTROSE [Concomitant]
     Active Substance: DEXTROSE
     Route: 042
     Dates: start: 20220914, end: 20220914
  21. POTASSIUM CHLORIDE [Concomitant]
     Active Substance: POTASSIUM CHLORIDE
     Indication: Nutritional supplementation
     Route: 042
     Dates: start: 20220908, end: 20220908
  22. POTASSIUM CHLORIDE [Concomitant]
     Active Substance: POTASSIUM CHLORIDE
     Route: 042
     Dates: start: 20220909, end: 20220927
  23. POTASSIUM CHLORIDE [Concomitant]
     Active Substance: POTASSIUM CHLORIDE
     Route: 042
     Dates: start: 20220726, end: 20220726
  24. POTASSIUM CHLORIDE [Concomitant]
     Active Substance: POTASSIUM CHLORIDE
     Route: 042
     Dates: start: 20220727, end: 20220727
  25. INSULIN NOS [Concomitant]
     Active Substance: INSULIN NOS
     Route: 042
     Dates: start: 20220922, end: 20220922
  26. MAGNESIUM ISOGLYCYRRHIZINATE [Concomitant]
     Active Substance: MAGNESIUM ISOGLYCYRRHIZINATE
     Route: 042
     Dates: start: 20220908, end: 20220924
  27. GLUTATHIONE [Concomitant]
     Active Substance: GLUTATHIONE
     Route: 042
     Dates: start: 20220908, end: 20220908
  28. RECOMBINANT HUMAN GRANULOCYTE COLONY STIMULATING FACTOR INJECTION (RHG [Concomitant]
     Indication: White blood cell count
     Route: 058
     Dates: start: 20220913, end: 20220915
  29. RECOMBINANT HUMAN GRANULOCYTE COLONY STIMULATING FACTOR INJECTION (RHG [Concomitant]
     Indication: Neutrophil count decreased
  30. ALBUMIN HUMAN [Concomitant]
     Active Substance: ALBUMIN HUMAN
     Indication: Hypoalbuminaemia
     Route: 042
     Dates: start: 20220913, end: 20220923
  31. KABIVEN [Concomitant]
     Active Substance: AMINO ACIDS\ANHYDROUS DEXTROSE\CALCIUM CHLORIDE\MAGNESIUM SULFATE HEPTAHYDRATE\POTASSIUM CHLORIDE\SO
     Route: 042
     Dates: start: 20220727, end: 20220730
  32. ESOMEPRAZOLE SODIUM [Concomitant]
     Active Substance: ESOMEPRAZOLE SODIUM
     Route: 042
     Dates: start: 20220727, end: 20220727
  33. OMEPRAZOLE SODIUM [Concomitant]
     Active Substance: OMEPRAZOLE SODIUM
     Route: 042
     Dates: start: 20220727, end: 20220731
  34. OMEPRAZOLE SODIUM [Concomitant]
     Active Substance: OMEPRAZOLE SODIUM
     Route: 042
     Dates: start: 20220726, end: 20220726
  35. METOCLOPRAMIDE DIHYDROCHLORIDE [Concomitant]
     Route: 042
     Dates: start: 20220802, end: 20220802
  36. METOCLOPRAMIDE DIHYDROCHLORIDE [Concomitant]
     Route: 042
     Dates: start: 20220726, end: 20220726
  37. TROPISETRON HYDROCHLORIDE [Concomitant]
     Active Substance: TROPISETRON HYDROCHLORIDE
     Route: 042
     Dates: start: 20220802, end: 20220802
  38. BUPLEURUM [Concomitant]
     Indication: Analgesic therapy
     Route: 030
     Dates: start: 20220909, end: 20220909
  39. BUPLEURUM [Concomitant]
     Route: 030
     Dates: start: 20220926, end: 20220926
  40. COMPOUND AMIONPRINE AND ANTIPYRINE [Concomitant]
     Route: 030
     Dates: start: 20220909, end: 20220909
  41. COMPOUND AMIONPRINE AND ANTIPYRINE [Concomitant]
     Route: 030
     Dates: start: 20220927, end: 20220927
  42. DIPHENHYDRAMINE HYDROCHLORIDE [Concomitant]
     Active Substance: DIPHENHYDRAMINE HYDROCHLORIDE
     Route: 030
     Dates: start: 20220913, end: 20220923
  43. HAEMOCOAGULASE AGKISTRODON [Concomitant]
     Route: 042
     Dates: start: 20220926, end: 20220926

REACTIONS (1)
  - Jaundice [Not Recovered/Not Resolved]

NARRATIVE: CASE EVENT DATE: 20220805
